FAERS Safety Report 14753112 (Version 5)
Quarter: 2018Q2

REPORT INFORMATION
  Report Type: Spontaneous
  Country: DK (occurrence: DK)
  Receive Date: 20180412
  Receipt Date: 20180627
  Transmission Date: 20180711
  Serious: Yes (Death, Life-Threatening, Hospitalization, Other)
  Sender: FDA-Public Use
  Company Number: DK-BAUSCH-BL-2017-036059

PATIENT
  Age: 83 Year
  Sex: Male

DRUGS (6)
  1. DICLOFENAC [Suspect]
     Active Substance: DICLOFENAC
     Indication: BACK PAIN
     Dosage: AS NECESSARY, RESCUE MEDICATION
     Route: 048
  2. WARFARIN SODIUM. [Interacting]
     Active Substance: WARFARIN SODIUM
     Indication: ANTICOAGULANT THERAPY
     Dosage: TREATED WITH WARFARIN FOR SEVERAL YEARS
     Route: 048
  3. WARFARIN SODIUM. [Interacting]
     Active Substance: WARFARIN SODIUM
     Indication: ATRIAL FIBRILLATION
     Dosage: TREATED WITH WARFARIN FOR SEVERAL YEARS
     Route: 048
  4. PARACETAMOL [Interacting]
     Active Substance: ACETAMINOPHEN
     Route: 048
  5. MORPHINE [Interacting]
     Active Substance: MORPHINE
     Indication: BACK PAIN
     Route: 048
  6. PARACETAMOL [Interacting]
     Active Substance: ACETAMINOPHEN
     Indication: BACK PAIN
     Dosage: DAILY
     Route: 048

REACTIONS (13)
  - Hemiparesis [Fatal]
  - Nervous system disorder [Fatal]
  - Muscular weakness [Fatal]
  - Labelled drug-drug interaction medication error [Fatal]
  - Unresponsive to stimuli [Fatal]
  - Cerebral haemorrhage [Fatal]
  - Aphasia [Fatal]
  - Brain midline shift [Fatal]
  - Hemianopia homonymous [Fatal]
  - Coma [Fatal]
  - Drug interaction [Fatal]
  - Asthenia [Fatal]
  - International normalised ratio increased [Fatal]
